FAERS Safety Report 9360979 (Version 1)
Quarter: 2013Q2

REPORT INFORMATION
  Report Type: Spontaneous
  Country: US (occurrence: None)
  Receive Date: 20130620
  Receipt Date: 20130620
  Transmission Date: 20140414
  Serious: Yes (Other)
  Sender: FDA-Public Use
  Company Number: None

PATIENT
  Sex: Female
  Weight: 52.16 kg

DRUGS (1)
  1. PREDNISONE [Suspect]
     Indication: RESPIRATORY TRACT INFLAMMATION

REACTIONS (2)
  - Incontinence [None]
  - Urinary incontinence [None]
